FAERS Safety Report 4852904-3 (Version None)
Quarter: 2005Q4

REPORT INFORMATION
  Report Type: 
  Country: None (occurrence: None)
  Receive Date: 20051212
  Receipt Date: 20051212
  Transmission Date: 20060501
  Serious: Yes (Hospitalization, Other)
  Sender: FDA-Public Use
  Company Number: None

PATIENT
  Sex: Female
  Weight: 56.36 kg

DRUGS (4)
  1. BEVACIZUMAB [Suspect]
     Indication: COLORECTAL CANCER
     Dosage: SEE IMAGE
     Dates: start: 20051114, end: 20051128
  2. BEVACIZUMAB [Suspect]
     Indication: COLORECTAL CANCER
     Dosage: SEE IMAGE
     Dates: start: 20051114
  3. NPH INSULIN [Concomitant]
  4. REGULAR INSULIN [Concomitant]

REACTIONS (1)
  - DEEP VEIN THROMBOSIS [None]
